FAERS Safety Report 13965771 (Version 1)
Quarter: 2017Q3

REPORT INFORMATION
  Report Type: Spontaneous
  Country: US (occurrence: US)
  Receive Date: 20170913
  Receipt Date: 20170913
  Transmission Date: 20171128
  Serious: Yes (Other)
  Sender: FDA-Public Use
  Company Number: US-JNJFOC-20170904755

PATIENT
  Age: 37 Year
  Sex: Female
  Weight: 95.26 kg

DRUGS (2)
  1. DURAGESIC [Suspect]
     Active Substance: FENTANYL
     Indication: PAIN
     Route: 062
     Dates: start: 2010
  2. FENTANYL. [Suspect]
     Active Substance: FENTANYL
     Indication: PRODUCT USED FOR UNKNOWN INDICATION
     Route: 065

REACTIONS (10)
  - Drug dose omission [Unknown]
  - Migraine [Unknown]
  - Breast cancer [Unknown]
  - Malaise [Unknown]
  - Hyperhidrosis [Unknown]
  - Product quality issue [Unknown]
  - Withdrawal syndrome [Unknown]
  - Urticaria [Unknown]
  - Oropharyngeal pain [Not Recovered/Not Resolved]
  - Weight fluctuation [Unknown]

NARRATIVE: CASE EVENT DATE: 201301
